FAERS Safety Report 4451364-4 (Version None)
Quarter: 2004Q3

REPORT INFORMATION
  Report Type: 
  Country: None (occurrence: None)
  Receive Date: 20040913
  Receipt Date: 20040706
  Transmission Date: 20050211
  Serious: No
  Sender: FDA-Public Use
  Company Number: 2004-BP-05377BP (0)

PATIENT
  Sex: Male

DRUGS (9)
  1. SPIRIVA [Suspect]
     Indication: CHRONIC OBSTRUCTIVE AIRWAYS DISEASE
     Dosage: 18 MCG (18 MCG, 1 CAPS OD), IH
     Route: 055
  2. ZYRTEC-D 12 HOUR [Concomitant]
  3. TOPROL-XL [Concomitant]
  4. PRILOSEC [Concomitant]
  5. AUGMENTIN [Concomitant]
  6. LEVAQUIN [Concomitant]
  7. LIPITOR [Concomitant]
  8. ALBUTEROL [Concomitant]
  9. OXYGEN (OXYGEN) [Concomitant]

REACTIONS (3)
  - HEADACHE [None]
  - HEART RATE DECREASED [None]
  - NASAL DRYNESS [None]
